FAERS Safety Report 4600098-1 (Version None)
Quarter: 2005Q1

REPORT INFORMATION
  Report Type: 
  Country: None (occurrence: None)
  Receive Date: 20050303
  Receipt Date: 20050216
  Transmission Date: 20050727
  Serious: Yes (Hospitalization)
  Sender: FDA-Public Use
  Company Number: 2005-DE-00620DE

PATIENT
  Age: 56 Year

DRUGS (2)
  1. ALNA (TAMSULOSIN) (KAR) (TAMSULOSIN HYDROCHLORIDE) [Suspect]
     Dosage: 2 MG (0.4 MG, 1 X 5 CAPSULES); PO (ONCE)
     Route: 048
  2. NOVALGIN (TA) [Suspect]
     Dosage: 1 X 2 TABLETS (NR, 1 X 2 TABLETS); PO (ONCE)
     Route: 048

REACTIONS (3)
  - DRUG ABUSER [None]
  - MULTIPLE DRUG OVERDOSE [None]
  - SUICIDE ATTEMPT [None]
